FAERS Safety Report 8870008 (Version 1)
Quarter: 2012Q4

REPORT INFORMATION
  Report Type: 
  Country: US (occurrence: None)
  Receive Date: 20121025
  Receipt Date: 20121025
  Transmission Date: 20130627
  Serious: No
  Sender: FDA-Public Use
  Company Number: None

PATIENT
  Sex: Female
  Weight: 62 kg

DRUGS (3)
  1. IFOSFAMIDE [Suspect]
     Dosage: 9.9 g
  2. PACLITAXEL (TAXOL) [Suspect]
     Dosage: 292 mg
  3. PEGFILGRASTIM [Suspect]
     Dosage: 6 mg

REACTIONS (3)
  - Syncope [None]
  - Fall [None]
  - Bone contusion [None]
